FAERS Safety Report 25471607 (Version 2)
Quarter: 2025Q3

REPORT INFORMATION
  Report Type: Spontaneous
  Country: RU (occurrence: RU)
  Receive Date: 20250624
  Receipt Date: 20250702
  Transmission Date: 20251020
  Serious: Yes (Other)
  Sender: NOVARTIS
  Company Number: RU-002147023-NVSC2025RU100326

PATIENT
  Age: 63 Year
  Sex: Male

DRUGS (1)
  1. INCLISIRAN [Suspect]
     Active Substance: INCLISIRAN
     Indication: Low density lipoprotein increased
     Route: 058
     Dates: start: 20250520

REACTIONS (3)
  - Arrhythmia [Recovered/Resolved]
  - Ventricular extrasystoles [Recovered/Resolved]
  - Bradycardia [Recovered/Resolved]

NARRATIVE: CASE EVENT DATE: 20250615
